FAERS Safety Report 5197965-X (Version None)
Quarter: 2007Q1

REPORT INFORMATION
  Report Type: 
  Country: None (occurrence: None)
  Receive Date: 20070104
  Receipt Date: 20061221
  Transmission Date: 20070707
  Serious: Yes (Hospitalization, Other)
  Sender: FDA-Public Use
  Company Number: PHFR2006GB03760

PATIENT
  Age: 37 Year
  Sex: Male
  Weight: 70 kg

DRUGS (3)
  1. CO-CODAMOL [Concomitant]
     Indication: BACK PAIN
     Dosage: 500 MG, QID
     Route: 048
     Dates: start: 20061108
  2. DIAZEPAM [Concomitant]
     Indication: BACK PAIN
     Dosage: 2 MG, BID
     Route: 048
     Dates: start: 20061108
  3. DICLOFENAC SODIUM [Suspect]
     Indication: BACK PAIN
     Dosage: 50 MG, TID
     Route: 048
     Dates: start: 20061108, end: 20061118

REACTIONS (3)
  - ANGIOEDEMA [None]
  - ARTHRALGIA [None]
  - RASH [None]
